FAERS Safety Report 4459553-X (Version None)
Quarter: 2004Q3

REPORT INFORMATION
  Report Type: 
  Country: None (occurrence: None)
  Receive Date: 20040927
  Receipt Date: 20040708
  Transmission Date: 20050211
  Serious: Yes (Hospitalization, Disabling)
  Sender: FDA-Public Use
  Company Number: US-MERCK-0407USA00707

PATIENT
  Age: 40 Year
  Sex: Male
  Weight: 95 kg

DRUGS (8)
  1. LIPITOR [Concomitant]
     Route: 048
     Dates: start: 20011201
  2. FLEXERIL [Concomitant]
     Indication: MYALGIA
     Route: 048
  3. NEURONTIN [Concomitant]
     Route: 048
  4. NIASPAN [Concomitant]
     Route: 048
  5. PAXIL [Concomitant]
     Route: 065
  6. VIOXX [Suspect]
     Indication: BACK PAIN
     Route: 048
     Dates: start: 20011218, end: 20020802
  7. VIAGRA [Concomitant]
     Route: 048
  8. VALTREX [Concomitant]
     Indication: HERPES ZOSTER
     Route: 048
     Dates: start: 20020514, end: 20020729

REACTIONS (18)
  - ANXIETY [None]
  - BLOOD ALKALINE PHOSPHATASE INCREASED [None]
  - BLOOD POTASSIUM DECREASED [None]
  - CONDITION AGGRAVATED [None]
  - CORONARY ARTERY DISEASE [None]
  - DEPRESSION [None]
  - DIABETES MELLITUS NON-INSULIN-DEPENDENT [None]
  - ERECTILE DYSFUNCTION [None]
  - HAEMATOCRIT DECREASED [None]
  - HYPERTENSION [None]
  - INTERNATIONAL NORMALISED RATIO DECREASED [None]
  - MICTURITION DISORDER [None]
  - MYOCARDIAL INFARCTION [None]
  - PLATELET COUNT DECREASED [None]
  - PROTHROMBIN TIME SHORTENED [None]
  - RENAL FAILURE ACUTE [None]
  - VENTRICULAR DYSFUNCTION [None]
  - WHITE BLOOD CELL COUNT INCREASED [None]
